FAERS Safety Report 20862292 (Version 1)
Quarter: 2022Q2

REPORT INFORMATION
  Report Type: Spontaneous
  Country: US (occurrence: None)
  Receive Date: 20220523
  Receipt Date: 20220523
  Transmission Date: 20220720
  Serious: No
  Sender: FDA-Public Use
  Company Number: None

PATIENT
  Sex: Female

DRUGS (1)
  1. NEXPLANON [Suspect]
     Active Substance: ETONOGESTREL
     Indication: Endometriosis
     Dosage: OTHER FREQUENCY : 3 YEARS;?OTHER ROUTE : SUBDERMAL;?
     Route: 050
     Dates: start: 202112

REACTIONS (1)
  - Therapy non-responder [None]
